FAERS Safety Report 5223834-2 (Version None)
Quarter: 2007Q1

REPORT INFORMATION
  Report Type: 
  Country: None (occurrence: None)
  Receive Date: 20070130
  Receipt Date: 20060605
  Transmission Date: 20070707
  Serious: No
  Sender: FDA-Public Use
  Company Number: US-BRISTOL-MYERS SQUIBB COMPANY-13401054

PATIENT
  Age: 78 Year
  Sex: Male
  Weight: 93 kg

DRUGS (2)
  1. LISODREN [Suspect]
     Indication: ADRENAL GLAND CANCER METASTATIC
     Dates: start: 20060101
  2. ATENOLOL [Concomitant]

REACTIONS (1)
  - DIARRHOEA [None]
